FAERS Safety Report 5149912-4 (Version None)
Quarter: 2006Q4

REPORT INFORMATION
  Report Type: 
  Country: None (occurrence: None)
  Receive Date: 20061108
  Receipt Date: 20061025
  Transmission Date: 20070319
  Serious: Yes (Other)
  Sender: FDA-Public Use
  Company Number: 2006031655

PATIENT
  Age: 68 Year
  Sex: Female
  Weight: 72.5755 kg

DRUGS (10)
  1. LYRICA [Suspect]
     Indication: NEURALGIA
     Dosage: 150 MG (50 MG, 3 IN 1 D), ORAL
     Route: 048
     Dates: start: 20060201, end: 20061001
  2. NEURONTIN [Suspect]
     Indication: MIGRAINE PROPHYLAXIS
     Dosage: 1800 MG (600 MG, 3 IN 1 D)
     Dates: start: 20061011
  3. NEURONTIN [Suspect]
     Indication: NEUROPATHY
     Dosage: 1800 MG (600 MG, 3 IN 1 D)
     Dates: start: 20061011
  4. CARDIZEM CD [Concomitant]
  5. LIPITOR [Concomitant]
  6. NEXIUM [Concomitant]
  7. DESYREL [Concomitant]
  8. HYOSCYAMINE (HYOSCYAMINE) [Concomitant]
  9. WARFARIN SODIUM [Concomitant]
  10. HYDREA [Concomitant]

REACTIONS (8)
  - CONDITION AGGRAVATED [None]
  - COORDINATION ABNORMAL [None]
  - DRUG INEFFECTIVE [None]
  - FEELING DRUNK [None]
  - NEURALGIA [None]
  - NEUROPATHY [None]
  - SOMNOLENCE [None]
  - VISION BLURRED [None]
